FAERS Safety Report 12423624 (Version 1)
Quarter: 2016Q2

REPORT INFORMATION
  Report Type: Spontaneous
  Country: US (occurrence: None)
  Receive Date: 20160531
  Receipt Date: 20160531
  Transmission Date: 20160815
  Serious: Yes (Other)
  Sender: FDA-Public Use
  Company Number: None

PATIENT
  Age: 15 Year
  Sex: Female
  Weight: 68.04 kg

DRUGS (7)
  1. GUANFACINE 1 MG, 1 MG [Suspect]
     Active Substance: GUANFACINE
     Indication: ANGER
     Route: 048
     Dates: start: 20160509, end: 20160522
  2. ZYRTEC [Concomitant]
     Active Substance: CETIRIZINE HYDROCHLORIDE
  3. DOCUSATE SODIUM. [Concomitant]
     Active Substance: DOCUSATE SODIUM
  4. MICORGESTIN [Concomitant]
  5. CALCIUM WITH VITAMIN D [Concomitant]
     Active Substance: CALCIUM\VITAMIN D
  6. METHYLATED FOLATE [Concomitant]
  7. MULTIVITAMIN [Concomitant]
     Active Substance: VITAMINS

REACTIONS (14)
  - Restlessness [None]
  - Aggression [None]
  - Screaming [None]
  - Condition aggravated [None]
  - Hyperphagia [None]
  - Abnormal behaviour [None]
  - Suicidal ideation [None]
  - Pruritus [None]
  - Increased appetite [None]
  - Homicidal ideation [None]
  - Anger [None]
  - Irritability [None]
  - Hypersensitivity [None]
  - Hyperaesthesia [None]

NARRATIVE: CASE EVENT DATE: 20160511
